FAERS Safety Report 24397485 (Version 1)
Quarter: 2024Q4

REPORT INFORMATION
  Report Type: Spontaneous
  Country: AT (occurrence: AT)
  Receive Date: 20241004
  Receipt Date: 20241004
  Transmission Date: 20250114
  Serious: Yes (Hospitalization, Other)
  Sender: ROCHE
  Company Number: AT-ROCHE-10000093642

PATIENT
  Age: 79 Year
  Sex: Female

DRUGS (3)
  1. ATEZOLIZUMAB [Suspect]
     Active Substance: ATEZOLIZUMAB
     Indication: Non-small cell lung cancer
     Route: 058
     Dates: start: 20210518
  2. ETOPOSIDE [Suspect]
     Active Substance: ETOPOSIDE
     Indication: Non-small cell lung cancer
     Route: 065
     Dates: start: 20210518
  3. CARBOPLATIN [Suspect]
     Active Substance: CARBOPLATIN
     Indication: Non-small cell lung cancer
     Route: 065
     Dates: start: 20210518

REACTIONS (6)
  - Leukopenia [Unknown]
  - Nausea [Unknown]
  - General physical health deterioration [Unknown]
  - Decreased appetite [Unknown]
  - Aphasia [Unknown]
  - Cerebellar ischaemia [Unknown]
